FAERS Safety Report 6128956-X (Version None)
Quarter: 2009Q1

REPORT INFORMATION
  Report Type: 
  Country: None (occurrence: None)
  Receive Date: 20090324
  Receipt Date: 20090314
  Transmission Date: 20090719
  Serious: Yes (Death, Other)
  Sender: FDA-Public Use
  Company Number: PHHY2009MX10439

PATIENT
  Age: 58 Year
  Sex: Male

DRUGS (2)
  1. RASILEZ [Suspect]
     Indication: HYPERTENSION
     Dosage: 1 TABLET (300 MG) DAILY
  2. INSULIN [Concomitant]
     Indication: DIABETES MELLITUS

REACTIONS (3)
  - CARDIAC OPERATION [None]
  - DEATH [None]
  - MYOCARDIAL INFARCTION [None]
